FAERS Safety Report 5814629-7 (Version None)
Quarter: 2008Q3

REPORT INFORMATION
  Report Type: 
  Country: None (occurrence: None)
  Receive Date: 20080718
  Receipt Date: 20071022
  Transmission Date: 20090109
  Serious: No
  Sender: FDA-Public Use
  Company Number: US-KINGPHARMUSA00001-K200701374

PATIENT

DRUGS (2)
  1. LEVOXYL [Suspect]
     Dosage: 75 MCG, UNK
     Route: 048
     Dates: start: 20050101
  2. LEVOXYL [Suspect]
     Dosage: (37.5 MCG) 1/2 OF 75 MCG TABLET OCCASIONALLY
     Route: 048

REACTIONS (2)
  - BLOOD THYROID STIMULATING HORMONE INCREASED [None]
  - DRUG INEFFECTIVE [None]
